FAERS Safety Report 9420162 (Version 4)
Quarter: 2013Q3

REPORT INFORMATION
  Report Type: Spontaneous
  Country: US (occurrence: US)
  Receive Date: 20130725
  Receipt Date: 20130906
  Transmission Date: 20140515
  Serious: Yes (Other)
  Sender: FDA-Public Use
  Company Number: US-009507513-1307USA012560

PATIENT
  Age: 65 Year
  Sex: Female
  Weight: 68.93 kg

DRUGS (4)
  1. MIRALAX [Suspect]
     Indication: CONSTIPATION
     Dosage: 17 G, UNKNOWN
     Route: 048
     Dates: start: 20130717, end: 20130717
  2. ACTONEL [Concomitant]
     Indication: OSTEOPENIA
     Dosage: 150 MG, UNK
     Route: 048
  3. BUPROPION HYDROCHLORIDE [Concomitant]
     Indication: DEPRESSION
     Dosage: 300 MG, UNK
     Route: 048
  4. PHENTERMINE [Concomitant]
     Indication: OBESITY
     Dosage: 37 MG, UNK
     Route: 048

REACTIONS (6)
  - Dyspnoea [Recovered/Resolved]
  - Rash macular [Recovered/Resolved]
  - Ear pruritus [Recovered/Resolved]
  - Pruritus [Recovered/Resolved]
  - Urticaria [Recovered/Resolved]
  - Anaphylactic reaction [Recovered/Resolved]
